FAERS Safety Report 4775143-3 (Version None)
Quarter: 2005Q3

REPORT INFORMATION
  Report Type: 
  Country: None (occurrence: None)
  Receive Date: 20050920
  Receipt Date: 20050912
  Transmission Date: 20060218
  Serious: Yes (Other)
  Sender: FDA-Public Use
  Company Number: 2005127111

PATIENT
  Sex: Female

DRUGS (1)
  1. CELEBREX [Suspect]
     Indication: ARTHRITIS

REACTIONS (4)
  - BONE OPERATION [None]
  - DRUG INEFFECTIVE [None]
  - PROSTHESIS IMPLANTATION [None]
  - UNEVALUABLE EVENT [None]
